FAERS Safety Report 20674187 (Version 1)
Quarter: 2022Q2

REPORT INFORMATION
  Report Type: Spontaneous
  Country: FR (occurrence: FR)
  Receive Date: 20220405
  Receipt Date: 20220405
  Transmission Date: 20220721
  Serious: Yes (Hospitalization)
  Sender: FDA-Public Use
  Company Number: None

PATIENT
  Age: 69 Year
  Sex: Female
  Weight: 81.8 kg

DRUGS (11)
  1. VENLAFAXINE [Suspect]
     Active Substance: VENLAFAXINE HYDROCHLORIDE
     Indication: Anxiety
     Dosage: 75 MILLIGRAM, PM (1 TABLET OF 75 MG IN THE EVENING)
     Route: 048
     Dates: end: 202201
  2. VENLAFAXINE [Suspect]
     Active Substance: VENLAFAXINE HYDROCHLORIDE
     Dosage: 112.5 MILLIGRAM, QD (1 TABLET OF 37.5MG IN THE MORNING AND 1 TABLET OF 75MG IN THE EVENING)
     Route: 048
     Dates: start: 202201
  3. CLOZAPINE [Interacting]
     Active Substance: CLOZAPINE
     Indication: Dementia with Lewy bodies
     Dosage: 37.5 MILLIGRAM, PM (1.5 TABLETS OF 25MG IN THE EVENING)
     Route: 048
     Dates: end: 20220223
  4. CLOZAPINE [Interacting]
     Active Substance: CLOZAPINE
     Dosage: 12.5 MILLIGRAM
     Route: 048
     Dates: start: 20220223
  5. MEKINIST [Suspect]
     Active Substance: TRAMETINIB DIMETHYL SULFOXIDE
     Indication: Metastatic malignant melanoma
     Dosage: 1 DOSAGE FORM, AM (1 TABLET IN THE MORNING)
     Route: 048
     Dates: start: 20220218, end: 20220223
  6. TAFINLAR [Suspect]
     Active Substance: DABRAFENIB MESYLATE
     Indication: Metastatic malignant melanoma
     Dosage: 2 CAPSULES IN THE MORNING AND 2 CAPSULES IN THE EVENING
     Route: 048
     Dates: start: 20220218, end: 20220223
  7. BENSERAZIDE HYDROCHLORIDE\LEVODOPA [Concomitant]
     Active Substance: BENSERAZIDE HYDROCHLORIDE\LEVODOPA
     Indication: Dementia with Lewy bodies
     Dosage: 1 TO 8 A.M., 12 P.M., 4 P.M. AND 8 P.M
  8. ESOMEPRAZOLE [Concomitant]
     Active Substance: ESOMEPRAZOLE
     Indication: Gastrooesophageal reflux disease
     Dosage: 20 MILLIGRAM
  9. PERINDOPRIL [Concomitant]
     Active Substance: PERINDOPRIL
     Indication: Hypertension
     Dosage: 2 MILLIGRAM
  10. BENSERAZIDE HYDROCHLORIDE\LEVODOPA [Concomitant]
     Active Substance: BENSERAZIDE HYDROCHLORIDE\LEVODOPA
     Indication: Dementia with Lewy bodies
     Dosage: 1 TO 8 A.M., 12 P.M., 4 P.M. AND 8 P.M.
  11. LEVOTHYROXINE SODIUM [Concomitant]
     Active Substance: LEVOTHYROXINE SODIUM
     Indication: Hypothyroidism
     Dosage: 100 MICROGRAM
     Route: 048

REACTIONS (2)
  - Confusional state [Recovering/Resolving]
  - Drug interaction [Unknown]

NARRATIVE: CASE EVENT DATE: 20220220
